FAERS Safety Report 8283988-0 (Version None)
Quarter: 2012Q2

REPORT INFORMATION
  Report Type: 
  Country: None (occurrence: None)
  Receive Date: 20120413
  Receipt Date: 20110630
  Transmission Date: 20120825
  Serious: No
  Sender: FDA-Public Use
  Company Number: US-ASTRAZENECA-2011SE39275

PATIENT
  Age: 84 Year
  Sex: Female
  Weight: 49 kg

DRUGS (2)
  1. HYDROCHLOROTHIAZIDE [Concomitant]
  2. NEXIUM [Suspect]
     Indication: GASTROOESOPHAGEAL REFLUX DISEASE
     Route: 048
     Dates: start: 20110603

REACTIONS (2)
  - ANGLE CLOSURE GLAUCOMA [None]
  - DYSPEPSIA [None]
